FAERS Safety Report 6917632-9 (Version None)
Quarter: 2010Q3

REPORT INFORMATION
  Report Type: 
  Country: None (occurrence: None)
  Receive Date: 20100810
  Receipt Date: 20100802
  Transmission Date: 20110219
  Serious: Yes (Other)
  Sender: FDA-Public Use
  Company Number: US-SANOFI-AVENTIS-2010SA029113

PATIENT
  Age: 59 Year
  Sex: Female
  Weight: 84 kg

DRUGS (10)
  1. MULTAQ [Suspect]
     Route: 048
     Dates: start: 20090901, end: 20100202
  2. FLAXSEED OIL [Concomitant]
  3. IRON SULFATETHIAMIN COMPOUND TAB [Concomitant]
  4. ASPIRIN [Concomitant]
     Route: 048
  5. VALSARTAN [Concomitant]
     Route: 048
  6. LASIX [Concomitant]
     Route: 048
  7. EPLERENONE [Concomitant]
     Route: 048
  8. CARVEDILOL [Concomitant]
     Route: 048
  9. ZETIA [Concomitant]
     Route: 048
  10. ZOLOFT [Concomitant]
     Route: 048

REACTIONS (3)
  - OFF LABEL USE [None]
  - VENTRICULAR FIBRILLATION [None]
  - VENTRICULAR TACHYCARDIA [None]
